FAERS Safety Report 8103877-1 (Version None)
Quarter: 2012Q1

REPORT INFORMATION
  Report Type: 
  Country: None (occurrence: None)
  Receive Date: 20120201
  Receipt Date: 20120126
  Transmission Date: 20120608
  Serious: Yes (Hospitalization, Other)
  Sender: FDA-Public Use
  Company Number: FR-PFIZER INC-2012021213

PATIENT
  Age: 96 Year
  Sex: Female

DRUGS (12)
  1. NEXIUM [Concomitant]
     Dosage: 20 MG, 2X/DAY
     Route: 048
  2. LYRICA [Suspect]
     Dosage: 50 MG, 2X/DAY
     Route: 048
     Dates: start: 20110106, end: 20110107
  3. FORADIL [Concomitant]
     Dosage: 1 DF, 2X/DAY
     Route: 055
     Dates: end: 20110107
  4. MIFLASONA [Concomitant]
     Dosage: 2 DOSAGES FORM PER DAY
     Route: 055
     Dates: end: 20110107
  5. TROSPIUM CHLORIDE [Concomitant]
     Dosage: 20 MG, 2X/DAY
     Route: 048
     Dates: end: 20110107
  6. VITAMIN D [Concomitant]
     Dosage: 1 AMPULE EVERY 3 MONTHS
  7. LERCANIDIPINE [Concomitant]
     Dosage: 10 MG, 1X/DAY
     Route: 048
  8. SICCAFLUID [Concomitant]
     Dosage: 2.5 MG, UNK
  9. IRBESARTAN + HYDROCHLOROTHIAZIDE [Suspect]
     Dosage: 300 MG/12.5 MG TABLET, ONE DOSAGE FORM PER DAY
     Route: 048
  10. EBASTINE [Concomitant]
     Dosage: 10 MG, 1X/DAY
     Route: 048
  11. ACETAMINOPHEN [Concomitant]
     Dosage: 1000 MG, 3X/DAY
     Route: 048
  12. LYRICA [Suspect]
     Dosage: 50MG ONCE DAILY
     Route: 048
     Dates: start: 20110103, end: 20110105

REACTIONS (2)
  - HYPONATRAEMIA [None]
  - FALL [None]
